FAERS Safety Report 8088296-9 (Version None)
Quarter: 2012Q1

REPORT INFORMATION
  Report Type: 
  Country: None (occurrence: None)
  Receive Date: 20120128
  Receipt Date: 20110425
  Transmission Date: 20120608
  Serious: No
  Sender: FDA-Public Use
  Company Number: US-ABBOTT-11P-163-0721278-00

PATIENT
  Sex: Male
  Weight: 88.53 kg

DRUGS (3)
  1. CYMBALTA [Concomitant]
     Indication: ANXIETY
  2. MERCAPTOPURINE [Concomitant]
     Indication: PRODUCT USED FOR UNKNOWN INDICATION
  3. HUMIRA [Suspect]
     Indication: CROHN'S DISEASE
     Dosage: LOADING DOSES

REACTIONS (2)
  - ERYTHEMA [None]
  - FLUSHING [None]
